FAERS Safety Report 5511713-2 (Version None)
Quarter: 2007Q4

REPORT INFORMATION
  Report Type: 
  Country: None (occurrence: None)
  Receive Date: 20071109
  Receipt Date: 20071101
  Transmission Date: 20080405
  Serious: Yes (Life-Threatening, Hospitalization, Other)
  Sender: FDA-Public Use
  Company Number: HQWYE644217AUG07

PATIENT
  Sex: Male
  Weight: 66 kg

DRUGS (9)
  1. MYLOTARG [Suspect]
     Indication: ACUTE MYELOID LEUKAEMIA
     Route: 041
     Dates: start: 20070802, end: 20070802
  2. ADALAT [Concomitant]
     Dosage: 20 MG/DAY
     Route: 048
     Dates: start: 20070425
  3. DIFLUCAN [Concomitant]
     Indication: PROPHYLAXIS
     Dosage: 200 MG/DAY
     Route: 048
     Dates: start: 20070723
  4. MULTI-VITAMINS [Concomitant]
     Dosage: 1 DF/DAY
     Route: 041
     Dates: start: 20070722
  5. SOLU-CORTEF [Concomitant]
     Indication: PYREXIA
     Dosage: 100 MG
     Route: 042
     Dates: start: 20070701
  6. PN TWIN [Concomitant]
     Dosage: 1100 MG/DAY
     Route: 041
     Dates: start: 20070722
  7. ZANTAC [Concomitant]
     Indication: PROPHYLAXIS
     Dosage: 100 MG/DAY
     Route: 042
     Dates: start: 20070722
  8. ZYVOX [Concomitant]
     Dosage: 1200 MG/DAY
     Route: 041
     Dates: start: 20070723, end: 20070806
  9. SILECE [Concomitant]
     Indication: INSOMNIA
     Dosage: 1 MG/DAY
     Route: 048
     Dates: start: 20070425

REACTIONS (9)
  - ANAEMIA [None]
  - BLOOD SODIUM INCREASED [None]
  - DIARRHOEA [None]
  - GASTROINTESTINAL INFECTION [None]
  - NEUTROPHIL COUNT DECREASED [None]
  - PETECHIAE [None]
  - PLATELET COUNT DECREASED [None]
  - VENOOCCLUSIVE LIVER DISEASE [None]
  - WHITE BLOOD CELL COUNT DECREASED [None]
